FAERS Safety Report 4866718-1 (Version None)
Quarter: 2005Q4

REPORT INFORMATION
  Report Type: 
  Country: None (occurrence: None)
  Receive Date: 20051221
  Receipt Date: 20051207
  Transmission Date: 20060501
  Serious: No
  Sender: FDA-Public Use
  Company Number: CH-2005-023894

PATIENT
  Sex: Female

DRUGS (1)
  1. BETAFERON(INTERFERON BETA - 1B) INJECTION, 250UG [Suspect]
     Dosage: SUBCUTANEOUS
     Route: 058
     Dates: start: 19950101, end: 20050101

REACTIONS (3)
  - CALCINOSIS [None]
  - LOCALISED INFECTION [None]
  - THERAPY NON-RESPONDER [None]
